FAERS Safety Report 4391088-5 (Version None)
Quarter: 2004Q3

REPORT INFORMATION
  Report Type: 
  Country: None (occurrence: None)
  Receive Date: 20040701
  Receipt Date: 20040701
  Transmission Date: 20050211
  Serious: Yes (Hospitalization)
  Sender: FDA-Public Use
  Company Number: None

PATIENT
  Age: 28 Year
  Sex: Female
  Weight: 52.6173 kg

DRUGS (2)
  1. ISONIAZID 300 MG WEST-WARD PHARMACEUTICAL EATON TOWN, NY. 07724 [Suspect]
     Indication: TUBERCULOSIS
     Dosage: 300 MG PO QD
     Route: 048
     Dates: start: 20040520
  2. PYRIODOXINE [Concomitant]

REACTIONS (7)
  - ABDOMINAL TENDERNESS [None]
  - ALANINE AMINOTRANSFERASE INCREASED [None]
  - ASPARTATE AMINOTRANSFERASE INCREASED [None]
  - FEELING ABNORMAL [None]
  - PYREXIA [None]
  - RESPIRATORY RATE INCREASED [None]
  - TACHYCARDIA [None]
